FAERS Safety Report 4279180-7 (Version None)
Quarter: 2004Q1

REPORT INFORMATION
  Report Type: 
  Country: None (occurrence: None)
  Receive Date: 20040123
  Receipt Date: 20040123
  Transmission Date: 20041129
  Serious: Yes (Hospitalization)
  Sender: FDA-Public Use
  Company Number: None

PATIENT
  Age: 38 Year
  Sex: Female
  Weight: 68.0396 kg

DRUGS (1)
  1. APRI (ETHINYL ESTRADIOL/LEVONORGESTREL) [Suspect]
     Indication: CONTRACEPTION
     Dosage: 1 TAB PER D

REACTIONS (4)
  - ABDOMINAL PAIN [None]
  - CHOLESTASIS [None]
  - HEPATITIS [None]
  - LIVER FUNCTION TEST ABNORMAL [None]
